FAERS Safety Report 5940939-9 (Version None)
Quarter: 2008Q4

REPORT INFORMATION
  Report Type: 
  Country: None (occurrence: None)
  Receive Date: 20081104
  Receipt Date: 20081027
  Transmission Date: 20090506
  Serious: Yes (Other)
  Sender: FDA-Public Use
  Company Number: US-ELI_LILLY_AND_COMPANY-US200810006598

PATIENT
  Age: 47 Year
  Sex: Female

DRUGS (5)
  1. BYETTA [Suspect]
     Dosage: 5 UG, 2/D
     Dates: start: 20080918, end: 20081018
  2. CYMBALTA [Concomitant]
  3. VYTORIN [Concomitant]
  4. XANAX [Concomitant]
  5. LOPRESSOR [Concomitant]

REACTIONS (1)
  - PANCREATITIS [None]
